FAERS Safety Report 6124688-2 (Version None)
Quarter: 2009Q1

REPORT INFORMATION
  Report Type: 
  Country: None (occurrence: None)
  Receive Date: 20090319
  Receipt Date: 20090309
  Transmission Date: 20090719
  Serious: Yes (Hospitalization)
  Sender: FDA-Public Use
  Company Number: IT-AMGEN-UK323186

PATIENT
  Sex: Male

DRUGS (10)
  1. PANITUMUMAB [Suspect]
     Indication: SQUAMOUS CELL CARCINOMA
     Route: 042
     Dates: start: 20081006, end: 20081124
  2. PANITUMUMAB [Suspect]
     Route: 042
     Dates: start: 20081124, end: 20081124
  3. PANITUMUMAB - STUDY PROCEDURE [Suspect]
  4. CISPLATIN [Suspect]
     Indication: SQUAMOUS CELL CARCINOMA
     Dates: start: 20081006
  5. RADIATION THERAPY [Suspect]
     Indication: SQUAMOUS CELL CARCINOMA
     Route: 050
     Dates: start: 20081006
  6. UNSPECIFIED TOPICAL PRODUCT [Concomitant]
     Dates: start: 20081025, end: 20081205
  7. NUTRITIONAL AGENTS AND VITAMINS [Concomitant]
     Route: 048
     Dates: start: 20081110
  8. MYCOSTATIN [Concomitant]
     Route: 048
     Dates: start: 20081127, end: 20081215
  9. FRAXIPARINE [Concomitant]
     Route: 058
     Dates: start: 20081127, end: 20081212
  10. KETOPROFEN [Concomitant]
     Route: 042
     Dates: start: 20081128

REACTIONS (1)
  - PNEUMONIA [None]
